FAERS Safety Report 24646773 (Version 2)
Quarter: 2024Q4

REPORT INFORMATION
  Report Type: Spontaneous
  Country: US (occurrence: US)
  Receive Date: 20241121
  Receipt Date: 20241125
  Transmission Date: 20250115
  Serious: No
  Sender: ROCHE
  Company Number: US-ROCHE-10000136135

PATIENT
  Age: 30 Year
  Sex: Male

DRUGS (6)
  1. MABTHERA [Suspect]
     Active Substance: RITUXIMAB
     Indication: Focal segmental glomerulosclerosis
     Dosage: 1G X2
     Route: 065
  2. GAZYVA [Suspect]
     Active Substance: OBINUTUZUMAB
     Indication: Focal segmental glomerulosclerosis
     Dosage: 1G X2 FOLLOWED BY 1G AT 6 MONTHS
     Route: 065
  3. PREDNISONE [Concomitant]
     Active Substance: PREDNISONE
     Indication: Focal segmental glomerulosclerosis
     Dosage: FOR ADDITIONAL 4 MONTHS
  4. TACROLIMUS [Concomitant]
     Active Substance: TACROLIMUS
     Dosage: TROUGH 5-7 MICROG/L
  5. DAPAGLIFLOZIN [Concomitant]
     Active Substance: DAPAGLIFLOZIN
  6. DARATUMUMAB [Concomitant]
     Active Substance: DARATUMUMAB
     Dosage: FOR 8 DOSES
     Route: 058

REACTIONS (2)
  - Hypogammaglobulinaemia [Unknown]
  - Pneumonia fungal [Unknown]
